FAERS Safety Report 20644838 (Version 1)
Quarter: 2022Q1

REPORT INFORMATION
  Report Type: Spontaneous
  Country: US (occurrence: None)
  Receive Date: 20220328
  Receipt Date: 20220328
  Transmission Date: 20220423
  Serious: Yes (Hospitalization)
  Sender: FDA-Public Use
  Company Number: None

PATIENT
  Age: 62 Year
  Sex: Male

DRUGS (16)
  1. TADALAFIL [Suspect]
     Active Substance: TADALAFIL
     Indication: Pulmonary embolism
     Dosage: FREQUENCY : TWICE A DAY;?
     Route: 048
     Dates: start: 20181126
  2. ATORVASTATIN [Concomitant]
     Active Substance: ATORVASTATIN
  3. FUROSEMIDE TAB [Concomitant]
  4. GABAPENTIN [Concomitant]
     Active Substance: GABAPENTIN
  5. JARDIANCE TAB [Concomitant]
  6. LANTUS SOLOS INJ [Concomitant]
  7. LEVOTHYROXIN TAB [Concomitant]
  8. NOVOLOG INJ [Concomitant]
  9. OPSUMIT TAB [Concomitant]
  10. SPIRONOLACT TAB [Concomitant]
  11. TADALAFIL [Concomitant]
     Active Substance: TADALAFIL
  12. TAMSULOSIN [Concomitant]
     Active Substance: TAMSULOSIN
  13. TRULICITY INJ [Concomitant]
  14. TYVASO START SOL [Concomitant]
  15. XIFAXAN TAB [Concomitant]
  16. ZOFRAN TAB [Concomitant]

REACTIONS (1)
  - Fluid retention [None]

NARRATIVE: CASE EVENT DATE: 20220322
